FAERS Safety Report 5833910-9 (Version None)
Quarter: 2008Q3

REPORT INFORMATION
  Report Type: 
  Country: None (occurrence: None)
  Receive Date: 20080805
  Receipt Date: 20080728
  Transmission Date: 20090109
  Serious: Yes (Hospitalization, Disabling, Other)
  Sender: FDA-Public Use
  Company Number: B0525682A

PATIENT
  Age: 25 Year
  Sex: Female

DRUGS (3)
  1. LAMICTAL [Suspect]
     Indication: EPILEPSY
     Dosage: 50MG THREE TIMES PER DAY
     Route: 065
     Dates: start: 20070901, end: 20080626
  2. PHENYTOIN [Concomitant]
     Dosage: 25MG FOUR TIMES PER DAY
     Route: 065
  3. CLONAZEPAM [Concomitant]
     Dosage: 500MCG AT NIGHT
     Route: 065

REACTIONS (6)
  - COLITIS [None]
  - DIARRHOEA [None]
  - DIARRHOEA HAEMORRHAGIC [None]
  - ERYTHEMA [None]
  - INTESTINAL FUNCTIONAL DISORDER [None]
  - VOMITING [None]
